FAERS Safety Report 11196871 (Version 1)
Quarter: 2015Q2

REPORT INFORMATION
  Report Type: Spontaneous
  Country: JP (occurrence: JP)
  Receive Date: 20150617
  Receipt Date: 20150617
  Transmission Date: 20150821
  Serious: Yes (Other)
  Sender: FDA-Public Use
  Company Number: JP-OTSUKA-US-2015-11121

PATIENT

DRUGS (1)
  1. SAMSCA [Suspect]
     Active Substance: TOLVAPTAN
     Indication: OEDEMA DUE TO HEPATIC DISEASE
     Dosage: 3.75 MG/DAY OR 7.5 MG/DAY
     Route: 048

REACTIONS (3)
  - Drug ineffective [Unknown]
  - Malaise [Recovered/Resolved]
  - Encephalopathy [Recovered/Resolved]
